FAERS Safety Report 6944866-X (Version None)
Quarter: 2010Q3

REPORT INFORMATION
  Report Type: 
  Country: None (occurrence: None)
  Receive Date: 20100827
  Receipt Date: 20100818
  Transmission Date: 20110219
  Serious: Yes (Hospitalization, Other)
  Sender: FDA-Public Use
  Company Number: US-ASTRAZENECA-2010SE38935

PATIENT
  Age: 48 Year
  Sex: Male
  Weight: 136.1 kg

DRUGS (4)
  1. SEROQUEL [Suspect]
     Indication: HALLUCINATION, AUDITORY
     Route: 048
     Dates: start: 19960101, end: 20100527
  2. SEROQUEL [Suspect]
     Indication: INSOMNIA
     Route: 048
     Dates: start: 19960101, end: 20100527
  3. GEODON [Suspect]
     Indication: HALLUCINATION, AUDITORY
     Route: 048
     Dates: start: 20100527, end: 20100501
  4. GEODON [Suspect]
     Indication: INSOMNIA
     Route: 048
     Dates: start: 20100527, end: 20100501

REACTIONS (4)
  - ANKLE FRACTURE [None]
  - DYSTONIA [None]
  - GLOSSITIS [None]
  - SWOLLEN TONGUE [None]
